FAERS Safety Report 24036820 (Version 1)
Quarter: 2024Q3

REPORT INFORMATION
  Report Type: Spontaneous
  Country: FR (occurrence: FR)
  Receive Date: 20240701
  Receipt Date: 20240701
  Transmission Date: 20241017
  Serious: Yes (Life-Threatening)
  Sender: MYLAN
  Company Number: None

PATIENT
  Age: 60 Year
  Sex: Male
  Weight: 66.3 kg

DRUGS (3)
  1. LANSOPRAZOLE [Suspect]
     Active Substance: LANSOPRAZOLE
     Indication: Prophylaxis against gastrointestinal ulcer
     Dosage: 2 DOSAGE FORM
     Route: 048
     Dates: start: 20240522, end: 20240613
  2. TAMSULOSIN [Suspect]
     Active Substance: TAMSULOSIN
     Indication: Benign prostatic hyperplasia
     Dosage: 1 DOSAGE FORM
     Route: 048
     Dates: start: 20240504, end: 20240613
  3. LOPERAMIDE [Suspect]
     Active Substance: LOPERAMIDE
     Indication: Post procedural diarrhoea
     Dosage: 3 DOSAGE FORM
     Route: 048
     Dates: start: 20240524, end: 20240613

REACTIONS (1)
  - SJS-TEN overlap [Not Recovered/Not Resolved]

NARRATIVE: CASE EVENT DATE: 20240611
